FAERS Safety Report 8926243 (Version 1)
Quarter: 2012Q4

REPORT INFORMATION
  Report Type: 
  Country: US (occurrence: US)
  Receive Date: 20121126
  Receipt Date: 20121126
  Transmission Date: 20130627
  Serious: No
  Sender: FDA-Public Use
  Company Number: US-VERTEX PHARMACEUTICAL INC.-2012-024727

PATIENT
  Age: 55 Year
  Sex: Male
  Weight: 104 kg

DRUGS (7)
  1. VX-950 (TELAPREVIR) [Suspect]
     Indication: HEPATITIS C
     Dosage: 750 mg, tid
     Route: 048
     Dates: start: 2012
  2. RIBAPAK [Concomitant]
     Indication: HEPATITIS C
     Dosage: 1 DF, UNK
     Dates: start: 2012
  3. PEGASYS [Concomitant]
     Indication: HEPATITIS C
     Dosage: 180 ?g, weekly
     Route: 058
     Dates: start: 2012
  4. CLARITIN                           /00413701/ [Concomitant]
     Dosage: 10 mg, qd
  5. ALLEGRA [Concomitant]
     Dosage: UNK, qd
  6. OMEPRAZOLE [Concomitant]
  7. MILK THISTLE [Concomitant]

REACTIONS (5)
  - Influenza like illness [Unknown]
  - Insomnia [Unknown]
  - Fatigue [Unknown]
  - Anorectal discomfort [Unknown]
  - Diarrhoea [Unknown]
